FAERS Safety Report 5423100-6 (Version None)
Quarter: 2007Q3

REPORT INFORMATION
  Report Type: 
  Country: None (occurrence: None)
  Receive Date: 20070821
  Receipt Date: 20070807
  Transmission Date: 20080115
  Serious: Yes (Other)
  Sender: FDA-Public Use
  Company Number: 2007R5-09066

PATIENT
  Sex: Female

DRUGS (2)
  1. AMOXACILINA SODICA (AMOXICILLIN) CAPSULE, 500MG [Suspect]
     Indication: SINUSITIS
     Dosage: 500 MG, QID, ORAL
     Route: 048
     Dates: start: 20070806, end: 20070807
  2. TORSILAX (SODIUM DICLOFENAC + CARISOPRODOL + PARACETAMOL + CAFFEINE) [Concomitant]

REACTIONS (3)
  - DRUG HYPERSENSITIVITY [None]
  - DRUG INTERACTION [None]
  - SWELLING FACE [None]
